FAERS Safety Report 22525723 (Version 1)
Quarter: 2023Q2

REPORT INFORMATION
  Report Type: Spontaneous
  Country: KR (occurrence: KR)
  Receive Date: 20230606
  Receipt Date: 20230606
  Transmission Date: 20230721
  Serious: Yes (Hospitalization)
  Sender: FDA-Public Use
  Company Number: KR-ORGANON-O2305KOR003054

PATIENT
  Age: 81 Year
  Sex: Male
  Weight: 60.1 kg

DRUGS (12)
  1. COZAAR [Suspect]
     Active Substance: LOSARTAN POTASSIUM
     Indication: Cardiac failure
     Dosage: 25 MILLIGRAM, QD (TABLET, UNCLASSIFIED)
     Route: 048
     Dates: start: 20201119, end: 20210220
  2. APIXABAN [Suspect]
     Active Substance: APIXABAN
     Indication: Atrial fibrillation
     Dosage: 25 MILLIGRAM, Q12H (0.5 DAY) (TABLETS, UNCLASSIFIED)
     Route: 048
     Dates: start: 20201119
  3. APIXABAN [Suspect]
     Active Substance: APIXABAN
     Indication: Atrial flutter
  4. FUROSEMIDE [Concomitant]
     Active Substance: FUROSEMIDE
     Indication: Cardiac failure
     Dosage: 20 MILLIGRAM, QD (TABLETS, UNCLASSIFIED)
     Route: 048
     Dates: start: 20200618
  5. SPIRONOLACTONE [Concomitant]
     Active Substance: SPIRONOLACTONE
     Indication: Cardiac failure
     Dosage: 25 MILLIGRAM, QD (TABLETS, UNCLASSIFIED)
     Route: 048
     Dates: start: 20200618
  6. CARVEDILOL [Concomitant]
     Active Substance: CARVEDILOL
     Indication: Cardiac failure
     Dosage: 6.25 MILLIGRAM, Q12H (0.5 DAY), (TABLETS, UNCLASSIFIED)
     Route: 048
     Dates: start: 20200618, end: 20210220
  7. ATORVASTATIN CALCIUM [Concomitant]
     Active Substance: ATORVASTATIN CALCIUM
     Indication: Hyperlipidaemia
     Dosage: 20 MILLIGRAM, QD (TABLETS, UNCLASSIFIED)
     Route: 048
     Dates: start: 20130809
  8. OMEGA-3-ACID ETHYL ESTER [Concomitant]
     Active Substance: OMEGA-3-ACID ETHYL ESTERS
     Indication: Hyperlipidaemia
     Dosage: UNK, QD (CAPSULE)
     Route: 048
     Dates: start: 20161226
  9. RABEPRAZOLE SODIUM [Concomitant]
     Active Substance: RABEPRAZOLE SODIUM
     Indication: Prophylaxis
     Dosage: UNK UNK, QD (TABLETS, UNCLASSIFIED)
     Route: 048
     Dates: start: 20200618
  10. TRIAZOLAM [Concomitant]
     Active Substance: TRIAZOLAM
     Indication: Sleep disorder
     Dosage: 0.25 MILLIGRAM (TABLETS, UNCLASSIFIED)
     Route: 048
     Dates: start: 20161226
  11. CLOPIDOGREL BISULFATE [Concomitant]
     Active Substance: CLOPIDOGREL BISULFATE
     Indication: Post procedural complication
     Dosage: 75 MILLIGRAM, QD (TABLETS, UNCLASSIFIED)
     Dates: start: 20201119
  12. ASPIRIN [Concomitant]
     Active Substance: ASPIRIN
     Indication: Post procedural complication
     Dosage: 100 MILLIGRAM, ONCE A DAY (TABLETS, UNCLASSIFIED)
     Route: 048
     Dates: start: 20201208

REACTIONS (1)
  - Cardiac failure congestive [Recovered/Resolved]

NARRATIVE: CASE EVENT DATE: 20210215
